FAERS Safety Report 18053594 (Version 1)
Quarter: 2020Q3

REPORT INFORMATION
  Report Type: Spontaneous
  Country: US (occurrence: US)
  Receive Date: 20200721
  Receipt Date: 20200721
  Transmission Date: 20201103
  Serious: Yes (Hospitalization)
  Sender: FDA-Public Use
  Company Number: None

PATIENT
  Sex: Male

DRUGS (1)
  1. RISPERIDONE. [Suspect]
     Active Substance: RISPERIDONE

REACTIONS (6)
  - Hypotension [None]
  - Hypothermia [None]
  - Bradycardia [None]
  - Hyponatraemia [None]
  - Hyperkalaemia [None]
  - Hypoglycaemia [None]

NARRATIVE: CASE EVENT DATE: 20190911
